FAERS Safety Report 11766463 (Version 1)
Quarter: 2015Q4

REPORT INFORMATION
  Report Type: Spontaneous
  Country: US (occurrence: US)
  Receive Date: 20151123
  Receipt Date: 20151123
  Transmission Date: 20160304
  Serious: No
  Sender: FDA-Public Use
  Company Number: US-ASTRAZENECA-2015SF10790

PATIENT

DRUGS (1)
  1. NEXIUM [Suspect]
     Active Substance: ESOMEPRAZOLE MAGNESIUM
     Route: 048

REACTIONS (6)
  - Dyspepsia [Unknown]
  - Asthma [Unknown]
  - Hiatus hernia [Unknown]
  - Off label use [Unknown]
  - Therapeutic response unexpected [Unknown]
  - Product use issue [Unknown]
